FAERS Safety Report 17128582 (Version 1)
Quarter: 2019Q4

REPORT INFORMATION
  Report Type: Spontaneous
  Country: US (occurrence: US)
  Receive Date: 20191115
  Receipt Date: 20191115
  Transmission Date: 20200122
  Serious: Yes (Hospitalization)
  Sender: FDA-Public Use
  Company Number: None

PATIENT
  Age: 52 Year
  Sex: Female

DRUGS (1)
  1. SIMPONI [Suspect]
     Active Substance: GOLIMUMAB
     Indication: RHEUMATOID ARTHRITIS
     Dosage: ?          OTHER DOSE:50MG/0.5ML;OTHER FREQUENCY:Q30DAYS;?
     Route: 058
     Dates: start: 20181125

REACTIONS (2)
  - Therapy cessation [None]
  - Neck surgery [None]

NARRATIVE: CASE EVENT DATE: 20191031
